FAERS Safety Report 10178053 (Version 1)
Quarter: 2014Q2

REPORT INFORMATION
  Report Type: Report from Study
  Country: BE (occurrence: BE)
  Receive Date: 20140518
  Receipt Date: 20140518
  Transmission Date: 20141212
  Serious: Yes (Hospitalization)
  Sender: FDA-Public Use
  Company Number: BE-009507513-1405BEL003979

PATIENT
  Age: 62 Year
  Sex: Female

DRUGS (3)
  1. BOCEPREVIR [Suspect]
     Indication: HEPATITIS C
     Dosage: STRENGTH 200 MG, 3X/DAY, TOTAL DAILY DOSE 2400 MG
     Route: 048
     Dates: start: 20131122
  2. PEGASYS [Suspect]
     Indication: HEPATITIS C
     Dosage: 180 MG, 1X/WEEK
     Route: 048
     Dates: start: 20131122
  3. COPEGUS [Suspect]
     Indication: HEPATITIS C
     Dosage: 2X/DAY, TOTAL DAILY DOSE 1000 MG
     Route: 048
     Dates: start: 20131122

REACTIONS (2)
  - General physical health deterioration [Unknown]
  - Anaemia [Unknown]
